FAERS Safety Report 4965626-5 (Version None)
Quarter: 2006Q1

REPORT INFORMATION
  Report Type: 
  Country: None (occurrence: None)
  Receive Date: 20060201
  Receipt Date: 20051011
  Transmission Date: 20060701
  Serious: No
  Sender: FDA-Public Use
  Company Number: 2005PV003159

PATIENT
  Age: 66 Year
  Sex: Female
  Weight: 110.6777 kg

DRUGS (13)
  1. BYETTA [Suspect]
     Indication: DIABETES MELLITUS NON-INSULIN-DEPENDENT
     Dosage: 10 MCG; BID; SC
     Route: 058
     Dates: start: 20050811
  2. NEUTRAL PROTAMINE [Concomitant]
  3. HAGEDORN [Concomitant]
  4. PREDNISONE TAB [Concomitant]
  5. CARBATROL [Concomitant]
  6. XANAX [Concomitant]
  7. PROPOXYPHENE [Concomitant]
  8. ASPIRIN [Concomitant]
  9. ALBUTEROL [Concomitant]
  10. NORVASC [Concomitant]
  11. SPIRONOLACTONE [Concomitant]
  12. FUROSEMIDE [Concomitant]
  13. HYDROCHLOROTHIAZIDE [Concomitant]

REACTIONS (5)
  - BLOOD PRESSURE INCREASED [None]
  - DECREASED APPETITE [None]
  - HEADACHE [None]
  - TREMOR [None]
  - WEIGHT DECREASED [None]
